FAERS Safety Report 9785752 (Version 1)
Quarter: 2013Q4

REPORT INFORMATION
  Report Type: Spontaneous
  Country: FR (occurrence: FR)
  Receive Date: 20131227
  Receipt Date: 20131227
  Transmission Date: 20140711
  Serious: Yes (Death)
  Sender: FDA-Public Use
  Company Number: FR-B.I. PHARMACEUTICALS,INC./RIDGEFIELD-2013-BI-43742FF

PATIENT
  Age: 76 Year
  Sex: Female

DRUGS (5)
  1. PRADAXA [Suspect]
     Dosage: 220 MG
     Dates: end: 20130508
  2. DIGOXINE NATIVELLE [Suspect]
     Route: 048
     Dates: end: 20130508
  3. HEMIGOXINE [Concomitant]
  4. CANDESARTAN [Concomitant]
  5. IMOVANE [Concomitant]

REACTIONS (2)
  - Subdural haematoma [Fatal]
  - Haemorrhage intracranial [Fatal]
